FAERS Safety Report 9380017 (Version 5)
Quarter: 2013Q4

REPORT INFORMATION
  Report Type: Spontaneous
  Country: US (occurrence: US)
  Receive Date: 20130702
  Receipt Date: 20131022
  Transmission Date: 20140711
  Serious: Yes (Hospitalization, Other)
  Sender: FDA-Public Use
  Company Number: US-PFIZER INC-2013191987

PATIENT
  Age: 77 Year
  Sex: Male
  Weight: 77.1 kg

DRUGS (2)
  1. SUTENT [Suspect]
     Indication: COLON CANCER
     Dosage: 25 MG, CYCLIC (28 DAYS FOLLOWED BY 14 DAYS WASH OUT)
     Route: 048
     Dates: start: 20120905
  2. LISINOPRIL [Concomitant]
     Indication: HYPERTENSION
     Dosage: UNK

REACTIONS (10)
  - Cholecystitis infective [Recovered/Resolved]
  - Klebsiella bacteraemia [Recovered/Resolved]
  - Cholelithiasis [Recovered/Resolved]
  - Weight decreased [Recovered/Resolved]
  - Body height decreased [Recovered/Resolved]
  - Malaise [Recovered/Resolved]
  - Dysgeusia [Recovered/Resolved]
  - Decreased appetite [Recovered/Resolved]
  - Pain [Recovered/Resolved]
  - Off label use [Unknown]
